FAERS Safety Report 17760325 (Version 1)
Quarter: 2020Q2

REPORT INFORMATION
  Report Type: Spontaneous
  Country: US (occurrence: US)
  Receive Date: 20200507
  Receipt Date: 20200507
  Transmission Date: 20200714
  Serious: Yes (Hospitalization)
  Sender: FDA-Public Use
  Company Number: None

PATIENT
  Sex: Female

DRUGS (10)
  1. TRAZODONE [Concomitant]
     Active Substance: TRAZODONE HYDROCHLORIDE
  2. AMANTADINE. [Concomitant]
     Active Substance: AMANTADINE HYDROCHLORIDE
  3. MONTELUKAST [Concomitant]
     Active Substance: MONTELUKAST SODIUM
  4. BUPROPN [Concomitant]
  5. GABAPENTIN. [Concomitant]
     Active Substance: GABAPENTIN
  6. TOPIRAMATE. [Concomitant]
     Active Substance: TOPIRAMATE
  7. XOLAIR [Suspect]
     Active Substance: OMALIZUMAB
     Indication: URTICARIA
     Dosage: ?          OTHER FREQUENCY:EVERY 28 DAYS;?
     Route: 058
  8. AMITIZA [Concomitant]
     Active Substance: LUBIPROSTONE
  9. DULOXETINE. [Concomitant]
     Active Substance: DULOXETINE
  10. PRAZOSIN. [Concomitant]
     Active Substance: PRAZOSIN

REACTIONS (7)
  - Dyspnoea [None]
  - Therapy interrupted [None]
  - Back pain [None]
  - Urticaria [None]
  - Insurance issue [None]
  - Diarrhoea [None]
  - Swelling [None]
